FAERS Safety Report 17374598 (Version 2)
Quarter: 2020Q1

REPORT INFORMATION
  Report Type: Spontaneous
  Country: FR (occurrence: FR)
  Receive Date: 20200206
  Receipt Date: 20200213
  Transmission Date: 20200409
  Serious: Yes (Hospitalization)
  Sender: FDA-Public Use
  Company Number: NVSC2020FR024707

PATIENT
  Age: 56 Year
  Sex: Male
  Weight: 94 kg

DRUGS (4)
  1. LOPRESSOR [Suspect]
     Active Substance: METOPROLOL TARTRATE
     Indication: INTENTIONAL OVERDOSE
     Dosage: 8 DF (TOTAL)
     Route: 048
     Dates: start: 20191014, end: 20191014
  2. TEMESTA (LORAZEPAM) [Suspect]
     Active Substance: LORAZEPAM
     Indication: INTENTIONAL OVERDOSE
     Dosage: 6 DF (TOTAL)
     Route: 048
     Dates: start: 20191014, end: 20191014
  3. PARACETAMOL [Suspect]
     Active Substance: ACETAMINOPHEN
     Indication: INTENTIONAL OVERDOSE
     Dosage: 4 G (TOTAL)
     Route: 048
     Dates: start: 20191014, end: 20191014
  4. LEXOMIL [Suspect]
     Active Substance: BROMAZEPAM
     Indication: INTENTIONAL OVERDOSE
     Dosage: 14 DF (TOTAL)
     Route: 048
     Dates: start: 20191014, end: 20191014

REACTIONS (4)
  - Poisoning deliberate [Recovered/Resolved]
  - Pruritus [Recovered/Resolved]
  - Hypertension [Recovered/Resolved]
  - Hypokalaemia [Recovered/Resolved]

NARRATIVE: CASE EVENT DATE: 20191014
